FAERS Safety Report 11119978 (Version 1)
Quarter: 2015Q2

REPORT INFORMATION
  Report Type: Spontaneous
  Country: US (occurrence: US)
  Receive Date: 20150518
  Receipt Date: 20150518
  Transmission Date: 20150821
  Serious: No
  Sender: FDA-Public Use
  Company Number: US-BAUSCH-BL-2014-005553

PATIENT
  Sex: Female

DRUGS (3)
  1. ELIDEL [Suspect]
     Active Substance: PIMECROLIMUS
     Indication: ERYTHEMA
  2. ELIDEL [Suspect]
     Active Substance: PIMECROLIMUS
     Indication: PRURITUS
  3. ELIDEL [Suspect]
     Active Substance: PIMECROLIMUS
     Indication: BURNING SENSATION
     Route: 061
     Dates: start: 201408

REACTIONS (3)
  - Condition aggravated [Not Recovered/Not Resolved]
  - Skin irritation [Unknown]
  - Drug ineffective [Unknown]

NARRATIVE: CASE EVENT DATE: 201408
